FAERS Safety Report 10761406 (Version 1)
Quarter: 2015Q1

REPORT INFORMATION
  Report Type: Spontaneous
  Country: US (occurrence: None)
  Receive Date: 20150203
  Receipt Date: 20150203
  Transmission Date: 20150721
  Serious: Yes (Death, Hospitalization)
  Sender: FDA-Public Use
  Company Number: None

PATIENT
  Age: 10 Year
  Sex: Female
  Weight: 39 kg

DRUGS (4)
  1. ONCASPAR [Suspect]
     Active Substance: PEGASPARGASE
     Dates: end: 20150121
  2. CYTARABINE. [Suspect]
     Active Substance: CYTARABINE
     Dates: end: 20150110
  3. VINCRISTINE SULFATE. [Suspect]
     Active Substance: VINCRISTINE SULFATE
     Dates: end: 20150121
  4. MERCAPTOPURINE. [Suspect]
     Active Substance: MERCAPTOPURINE
     Dates: end: 20150113

REACTIONS (20)
  - Vomiting [None]
  - Hypochloraemia [None]
  - Dyspnoea [None]
  - Poor peripheral circulation [None]
  - Lethargy [None]
  - Hypotension [None]
  - Anion gap increased [None]
  - Pulse absent [None]
  - Hyponatraemia [None]
  - Cough [None]
  - Cardiac arrest [None]
  - Bacterial infection [None]
  - Pallor [None]
  - Pyrexia [None]
  - Leukopenia [None]
  - Septic shock [None]
  - Tachycardia [None]
  - Bradycardia [None]
  - Thrombocytopenia [None]
  - Blood bicarbonate decreased [None]

NARRATIVE: CASE EVENT DATE: 20150124
